FAERS Safety Report 5485479-9 (Version None)
Quarter: 2007Q4

REPORT INFORMATION
  Report Type: 
  Country: None (occurrence: None)
  Receive Date: 20071010
  Receipt Date: 20071010
  Transmission Date: 20080405
  Serious: Yes (Hospitalization)
  Sender: FDA-Public Use
  Company Number: None

PATIENT
  Sex: Male
  Weight: 62.5964 kg

DRUGS (1)
  1. AFRIN [Suspect]
     Indication: NASOPHARYNGITIS
     Dosage: 2 OR 3 SPRAYS PER DOSE 2 OR 3 TIMES A DAY NASAL
     Route: 045

REACTIONS (3)
  - CONVULSION [None]
  - ELECTROENCEPHALOGRAM ABNORMAL [None]
  - INCORRECT DOSE ADMINISTERED [None]
